FAERS Safety Report 16856048 (Version 1)
Quarter: 2019Q3

REPORT INFORMATION
  Report Type: Spontaneous
  Country: US (occurrence: US)
  Receive Date: 20190926
  Receipt Date: 20190926
  Transmission Date: 20191005
  Serious: No
  Sender: FDA-Public Use
  Company Number: US-PFIZER INC-2019408745

PATIENT
  Age: 61 Year
  Sex: Male
  Weight: 117.91 kg

DRUGS (1)
  1. XELJANZ XR [Suspect]
     Active Substance: TOFACITINIB CITRATE
     Indication: RHEUMATOID ARTHRITIS
     Dosage: 11 MG, DAILY
     Route: 048
     Dates: start: 20190724

REACTIONS (6)
  - Abdominal pain upper [Unknown]
  - Headache [Unknown]
  - Back pain [Unknown]
  - Hot flush [Unknown]
  - Burning sensation [Unknown]
  - Rash [Unknown]
